FAERS Safety Report 16835632 (Version 1)
Quarter: 2019Q3

REPORT INFORMATION
  Report Type: Spontaneous
  Country: US (occurrence: US)
  Receive Date: 20190920
  Receipt Date: 20190920
  Transmission Date: 20191005
  Serious: No
  Sender: FDA-Public Use
  Company Number: US-AMARIN PHARMA, INC.-2019AMR000223

PATIENT

DRUGS (1)
  1. VASCEPA [Suspect]
     Active Substance: ICOSAPENT ETHYL
     Indication: LIPIDS INCREASED
     Route: 048

REACTIONS (4)
  - Wrong technique in product usage process [Unknown]
  - Product taste abnormal [Unknown]
  - Product size issue [Unknown]
  - Foreign body in respiratory tract [Unknown]
